FAERS Safety Report 23130768 (Version 3)
Quarter: 2023Q4

REPORT INFORMATION
  Report Type: Report from Study
  Country: RU (occurrence: RU)
  Receive Date: 20231031
  Receipt Date: 20231116
  Transmission Date: 20240109
  Serious: Yes (Hospitalization)
  Sender: FDA-Public Use
  Company Number: RU-002147023-NVSC2023RU228253

PATIENT
  Age: 72 Year
  Sex: Female
  Weight: 75 kg

DRUGS (15)
  1. KISQALI [Suspect]
     Active Substance: RIBOCICLIB
     Indication: HER2 negative breast cancer
     Dosage: 400 MG, QD
     Route: 048
     Dates: start: 20191127
  2. FEMARA [Suspect]
     Active Substance: LETROZOLE
     Indication: HER2 negative breast cancer
     Dosage: 2.5 MG, QD
     Route: 048
     Dates: start: 20191127
  3. PROPRANOLOL HYDROCHLORIDE [Concomitant]
     Active Substance: PROPRANOLOL HYDROCHLORIDE
     Indication: Hypertension
     Dosage: 40 MG, QD
     Route: 065
     Dates: start: 20080415
  4. BISOPROLOL [Concomitant]
     Active Substance: BISOPROLOL\BISOPROLOL FUMARATE
     Indication: Hypertension
     Dosage: 5 MG, QD
     Route: 065
     Dates: start: 20220121
  5. ATORVASTATIN [Concomitant]
     Active Substance: ATORVASTATIN
     Indication: Hypertension
     Dosage: 20 MG
     Route: 065
     Dates: start: 20220427
  6. ROSUVASTATIN [Concomitant]
     Active Substance: ROSUVASTATIN
     Indication: Hypertension
     Dosage: 10 MG, QD
     Route: 065
     Dates: start: 20220427
  7. KETORAL [Concomitant]
     Indication: Sciatica
     Dosage: UNK
     Route: 065
     Dates: start: 20221110
  8. LERCANIDIPINE [Concomitant]
     Active Substance: LERCANIDIPINE
     Indication: Hypertension
     Dosage: 5 MG, QD
     Route: 065
     Dates: start: 20220427
  9. AMLODIPINE [Concomitant]
     Active Substance: AMLODIPINE BESYLATE
     Indication: Hypertension
     Dosage: 5 MG, QD
     Route: 065
     Dates: start: 20220427
  10. LEVAMISOLE [Concomitant]
     Active Substance: LEVAMISOLE
     Indication: Hypertension
     Dosage: 10 MG, QD
     Route: 048
     Dates: start: 20220427
  11. VALSARTAN [Concomitant]
     Active Substance: VALSARTAN
     Indication: Hypertension
     Dosage: 80 MG
     Route: 065
     Dates: start: 20220427
  12. VALSACOR H [Concomitant]
     Indication: Hypertension
     Dosage: 12.5 MG, QD
     Route: 065
     Dates: start: 20220427
  13. AZILSARTAN KAMEDOXOMIL [Concomitant]
     Active Substance: AZILSARTAN KAMEDOXOMIL
     Indication: Hypertension
     Dosage: 40 MG, QD
     Route: 065
     Dates: start: 20220427
  14. EDARBI CLO [Concomitant]
     Indication: Hypertension
     Dosage: 12.5 MG, QD
     Route: 065
     Dates: start: 20220427
  15. ASPIRIN [Concomitant]
     Active Substance: ASPIRIN
     Indication: Hypertension
     Dosage: UNK
     Route: 065
     Dates: start: 20220427

REACTIONS (2)
  - Osteoarthritis [Recovered/Resolved with Sequelae]
  - Osteoarthritis [Recovered/Resolved with Sequelae]

NARRATIVE: CASE EVENT DATE: 20230925
